FAERS Safety Report 9428476 (Version 6)
Quarter: 2019Q1

REPORT INFORMATION
  Report Type: Spontaneous
  Country: DE (occurrence: DE)
  Receive Date: 20130730
  Receipt Date: 20190131
  Transmission Date: 20190418
  Serious: Yes (Hospitalization, Congenital Anomaly, Other)
  Sender: FDA-Public Use
  Company Number: DE-SANOFI-AVENTIS-2013SA074434

PATIENT
  Age: 9 Month
  Sex: Male
  Weight: 2.8 kg

DRUGS (7)
  1. RAMIPRIL. [Suspect]
     Active Substance: RAMIPRIL
     Indication: MATERNAL EXPOSURE TIMING UNSPECIFIED
     Dosage: UNK UNK,UNK
     Route: 064
  2. DIHYDRALAZINE [Suspect]
     Active Substance: DIHYDRALAZINE
     Indication: HYPERTENSION
     Route: 064
  3. PRAVASTATIN SODIUM. [Suspect]
     Active Substance: PRAVASTATIN SODIUM
     Indication: PRODUCT USED FOR UNKNOWN INDICATION
     Dosage: 0-8 WEEKS
     Route: 064
  4. HYDRALAZINE HYDROCHLORIDE. [Suspect]
     Active Substance: HYDRALAZINE HYDROCHLORIDE
     Indication: MATERNAL EXPOSURE TIMING UNSPECIFIED
     Dosage: UNK UNK,UNK
     Route: 064
  5. ACETYLSALICYLIC ACID [Suspect]
     Active Substance: ASPIRIN
     Indication: MATERNAL EXPOSURE TIMING UNSPECIFIED
     Dosage: 100 MG,QD
     Route: 064
  6. CLOPIDOGREL BISULFATE. [Suspect]
     Active Substance: CLOPIDOGREL BISULFATE
     Indication: PRODUCT USED FOR UNKNOWN INDICATION
     Dosage: DAILY DOSE: 75 MG MILLIGRAM(S) EVERY DAY
     Route: 064
  7. METOPROLOL SALT NOT SPECIFIED [Suspect]
     Active Substance: METOPROLOL
     Indication: PRODUCT USED FOR UNKNOWN INDICATION
     Dosage: UNK UNK,UNK
     Route: 064

REACTIONS (18)
  - Aorta hypoplasia [Recovered/Resolved with Sequelae]
  - Mitral valve disease [Unknown]
  - Off label use [Unknown]
  - Congenital heart valve disorder [Unknown]
  - Ventricular septal defect [Unknown]
  - Atrial septal defect [Recovered/Resolved with Sequelae]
  - Seizure [Unknown]
  - Surgery [Unknown]
  - Congenital aortic anomaly [Unknown]
  - Foetal exposure during pregnancy [Unknown]
  - Heart disease congenital [Unknown]
  - Coarctation of the aorta [Recovered/Resolved with Sequelae]
  - Patent ductus arteriosus [Unknown]
  - Congenital aortic valve stenosis [Recovered/Resolved with Sequelae]
  - Shone complex [Unknown]
  - Supravalvular aortic stenosis [Recovered/Resolved with Sequelae]
  - Congenital aortic stenosis [Unknown]
  - Mitral valve hypoplasia [Recovered/Resolved with Sequelae]

NARRATIVE: CASE EVENT DATE: 2005
